FAERS Safety Report 4774943-3 (Version None)
Quarter: 2005Q3

REPORT INFORMATION
  Report Type: 
  Country: None (occurrence: None)
  Receive Date: 20050920
  Receipt Date: 20050907
  Transmission Date: 20060218
  Serious: Yes (Life-Threatening)
  Sender: FDA-Public Use
  Company Number: 2005125799

PATIENT
  Age: 58 Year
  Sex: Female

DRUGS (3)
  1. PHENYTOIN SODIUM [Suspect]
     Indication: ILL-DEFINED DISORDER
     Dosage: 400 MG (200 MG, 2 IN 1 D), ORAL
     Route: 048
     Dates: start: 20041201
  2. VALSARTAN [Suspect]
     Indication: ILL-DEFINED DISORDER
     Dosage: 160 MG (160 MG, 1 IN 1 D), ORAL
     Route: 048
     Dates: start: 20041201
  3. BENDROFLUAZIDE (BENDROFLUMETHIAZIDE) [Suspect]
     Indication: ILL-DEFINED DISORDER
     Dosage: 2.5 MG (2.5 MG, 1 IN 1 D), ORAL
     Route: 048
     Dates: start: 20041201

REACTIONS (1)
  - EPILEPSY [None]
